FAERS Safety Report 9360564 (Version 1)
Quarter: 2013Q2

REPORT INFORMATION
  Report Type: Spontaneous
  Country: CH (occurrence: CH)
  Receive Date: 20130621
  Receipt Date: 20130621
  Transmission Date: 20140414
  Serious: Yes (Hospitalization)
  Sender: FDA-Public Use
  Company Number: CH-SANOFI-AVENTIS-2013SA060299

PATIENT
  Age: 65 Year
  Sex: Male
  Weight: 69 kg

DRUGS (8)
  1. JEVTANA [Suspect]
     Indication: CHEMOTHERAPY
     Route: 041
  2. PREDNISON [Suspect]
     Indication: CHEMOTHERAPY
     Route: 048
     Dates: start: 20130411, end: 20130429
  3. ECOFENAC [Suspect]
     Indication: PRODUCT USED FOR UNKNOWN INDICATION
     Route: 048
     Dates: start: 20130419, end: 20130429
  4. DEXAMETHASONE SODIUM PHOSPHATE [Suspect]
     Indication: CHEMOTHERAPY
     Route: 040
     Dates: start: 20130411, end: 20130429
  5. FENTANYL [Concomitant]
     Route: 062
     Dates: start: 20130411
  6. PANTOPRAZOLE SODIUM [Concomitant]
     Route: 048
     Dates: start: 20130411
  7. DAFALGAN [Concomitant]
     Route: 048
     Dates: start: 20130411, end: 20130429
  8. PRIMPERAN [Concomitant]
     Route: 048
     Dates: start: 20130411, end: 20130429

REACTIONS (1)
  - Gastric ulcer [Recovered/Resolved]
